FAERS Safety Report 7591840-9 (Version None)
Quarter: 2011Q3

REPORT INFORMATION
  Report Type: 
  Country: None (occurrence: None)
  Receive Date: 20110701
  Receipt Date: 20110701
  Transmission Date: 20111222
  Serious: No
  Sender: FDA-Public Use
  Company Number: None

PATIENT
  Age: 30 Year
  Sex: Female
  Weight: 116.5744 kg

DRUGS (2)
  1. MS CONTIN [Suspect]
     Dosage: 15MG
     Dates: start: 20110225
  2. FENTANYL-100 [Suspect]
     Dates: start: 20110225

REACTIONS (2)
  - HEADACHE [None]
  - PRURITUS [None]
